FAERS Safety Report 6275974-7 (Version None)
Quarter: 2009Q3

REPORT INFORMATION
  Report Type: 
  Country: None (occurrence: None)
  Receive Date: 20090720
  Receipt Date: 20090709
  Transmission Date: 20100115
  Serious: Yes (Other)
  Sender: FDA-Public Use
  Company Number: 2009US002587

PATIENT
  Age: 80 Year
  Sex: Female
  Weight: 45.4 kg

DRUGS (2)
  1. LEXISCAN [Suspect]
     Indication: SCAN MYOCARDIAL PERFUSION
     Dosage: 0.4 MG, IV NOS
     Route: 042
     Dates: start: 20080801, end: 20080801
  2. AMINOPHYLLIN [Suspect]
     Indication: NAUSEA
     Dates: start: 20080801, end: 20080801

REACTIONS (6)
  - DIPLOPIA [None]
  - MYOCARDIAL INFARCTION [None]
  - NAUSEA [None]
  - PROCEDURAL COMPLICATION [None]
  - TREMOR [None]
  - VISION BLURRED [None]
